FAERS Safety Report 11345450 (Version 2)
Quarter: 2015Q3

REPORT INFORMATION
  Report Type: Spontaneous
  Country: GB (occurrence: GB)
  Receive Date: 20150806
  Receipt Date: 20150810
  Transmission Date: 20151125
  Serious: Yes (Hospitalization)
  Sender: FDA-Public Use
  Company Number: GB-PFIZER INC-2015250963

PATIENT
  Age: 76 Year
  Sex: Female
  Weight: 44 kg

DRUGS (8)
  1. OMEPRAZOLE. [Concomitant]
     Active Substance: OMEPRAZOLE
     Dosage: 40 MG, UNK
  2. BENDROFLUMETHIAZIDE [Concomitant]
     Active Substance: BENDROFLUMETHIAZIDE
     Dosage: UNK
     Dates: end: 201504
  3. CAPECITABINE. [Suspect]
     Active Substance: CAPECITABINE
     Dosage: 800 MG, UNK
     Route: 048
     Dates: start: 20150507
  4. IRBESARTAN. [Concomitant]
     Active Substance: IRBESARTAN
     Dosage: UNK
     Dates: end: 201504
  5. CISPLATIN. [Suspect]
     Active Substance: CISPLATIN
     Indication: OESOPHAGEAL CARCINOMA
     Dosage: 80 MG, UNK
     Route: 042
     Dates: start: 20150507
  6. SIMVASTATIN. [Concomitant]
     Active Substance: SIMVASTATIN
     Dosage: UNK
     Dates: end: 201504
  7. NEBIVOLOL. [Concomitant]
     Active Substance: NEBIVOLOL
     Dosage: UNK
     Dates: end: 201504
  8. EPIRUBICIN HCL [Suspect]
     Active Substance: EPIRUBICIN HYDROCHLORIDE
     Indication: OESOPHAGEAL CARCINOMA
     Dosage: 70 MG, UNK
     Route: 042
     Dates: start: 20150507

REACTIONS (1)
  - Electrolyte imbalance [Recovering/Resolving]

NARRATIVE: CASE EVENT DATE: 20150526
